FAERS Safety Report 9852369 (Version 4)
Quarter: 2014Q1

REPORT INFORMATION
  Report Type: Spontaneous
  Country: JP (occurrence: JP)
  Receive Date: 20140129
  Receipt Date: 20140307
  Transmission Date: 20141002
  Serious: Yes (Hospitalization, Other)
  Sender: FDA-Public Use
  Company Number: JP-ASTELLAS-2014JP000650

PATIENT
  Age: 80 Year
  Sex: Male
  Weight: 50 kg

DRUGS (17)
  1. PROGRAF [Suspect]
     Indication: RHEUMATOID ARTHRITIS
     Dosage: 1 MG, UID/QD
     Route: 048
     Dates: start: 20081009
  2. PREDNISOLONE [Suspect]
     Indication: RHEUMATOID ARTHRITIS
     Dosage: 2.5 MG, UID/QD
     Route: 048
  3. RHEUMATREX /00113801/ [Suspect]
     Indication: RHEUMATOID ARTHRITIS
     Dosage: 4 MG, WEEKLY
     Route: 048
  4. PARIET [Suspect]
     Dosage: UNK
     Route: 048
  5. FOLIAMIN [Concomitant]
     Route: 048
  6. DIOVAN [Concomitant]
     Route: 048
  7. HALFDIGOXIN [Concomitant]
     Route: 048
  8. EQUA [Concomitant]
     Route: 048
  9. GASTER [Concomitant]
     Route: 048
  10. EBASTEL [Concomitant]
     Route: 048
  11. MUCOSTA [Concomitant]
     Route: 048
  12. APLACE [Concomitant]
     Route: 048
  13. BAYASPIRIN [Concomitant]
     Route: 048
  14. PLETAAL [Concomitant]
     Route: 048
  15. ANPLAG [Concomitant]
     Route: 048
  16. OPALMON [Concomitant]
     Route: 048
  17. HYPEN                              /00613801/ [Concomitant]
     Route: 048

REACTIONS (2)
  - Salmonella sepsis [Recovered/Resolved]
  - Gastroenteritis salmonella [Recovering/Resolving]
